FAERS Safety Report 4996528-6 (Version None)
Quarter: 2006Q2

REPORT INFORMATION
  Report Type: 
  Country: None (occurrence: None)
  Receive Date: 20060505
  Receipt Date: 20060427
  Transmission Date: 20061013
  Serious: Yes (Death)
  Sender: FDA-Public Use
  Company Number: 2005-12-0656

PATIENT
  Age: 49 Year
  Sex: Male
  Weight: 95.2554 kg

DRUGS (11)
  1. METHADONE HCL [Suspect]
  2. PEG-INTRON [Suspect]
     Indication: HEPATITIS C
     Dosage: BLINDED QWK SUBCUTANEOUS
     Route: 058
     Dates: start: 20050708, end: 20051211
  3. REBETOL [Suspect]
     Indication: HEPATITIS C
     Dosage: 1200 MG QD ORAL
     Route: 048
     Dates: start: 20050708, end: 20051211
  4. LISINOPRIL [Concomitant]
  5. TOPROL-XL [Concomitant]
  6. ALLOPURINOL [Concomitant]
  7. NAPROXEN SODIUM [Concomitant]
  8. PHENERGAN HCL [Concomitant]
  9. KLONOPIN [Concomitant]
  10. ALLEGRA [Concomitant]
  11. XANAX [Concomitant]

REACTIONS (3)
  - ACCIDENTAL DEATH [None]
  - DRUG SCREEN POSITIVE [None]
  - DRUG TOXICITY [None]
